FAERS Safety Report 8894458 (Version 1)
Quarter: 2012Q4

REPORT INFORMATION
  Report Type: 
  Country: US (occurrence: US)
  Receive Date: 20121107
  Receipt Date: 20121107
  Transmission Date: 20130627
  Serious: No
  Sender: FDA-Public Use
  Company Number: US-AMGEN-USASP2011059674

PATIENT
  Age: 55 Year
  Sex: Male
  Weight: 106.58 kg

DRUGS (5)
  1. ENBREL [Suspect]
     Indication: PRODUCT USED FOR UNKNOWN INDICATION
     Dosage: 25 mg, 2 times/wk
  2. GLUCOSAMINE/CHONDROITIN            /01625901/ [Concomitant]
     Route: 048
  3. FISH OIL [Concomitant]
     Route: 048
  4. MULTIVITAMIN                       /00097801/ [Concomitant]
     Route: 048
  5. VITAMIN D /00107901/ [Concomitant]
     Dosage: 400 IU, UNK
     Route: 048

REACTIONS (1)
  - Nasopharyngitis [Recovered/Resolved]
